FAERS Safety Report 6345240-X (Version None)
Quarter: 2009Q3

REPORT INFORMATION
  Report Type: 
  Country: None (occurrence: None)
  Receive Date: 20090909
  Receipt Date: 20090827
  Transmission Date: 20100115
  Serious: Yes (Other)
  Sender: FDA-Public Use
  Company Number: PHHY2009BR36519

PATIENT
  Age: 22 Year
  Sex: Female
  Weight: 50 kg

DRUGS (2)
  1. METHERGINE [Suspect]
     Indication: HAEMORRHAGE
     Dosage: 1 DF, Q12H
     Route: 048
  2. MEFENAMIC ACID [Concomitant]
     Indication: HAEMORRHAGE
     Dosage: 500 MG, Q12H

REACTIONS (2)
  - UTERINE DILATION AND CURETTAGE [None]
  - VAGINAL DISCHARGE [None]
